FAERS Safety Report 21924495 (Version 1)
Quarter: 2023Q1

REPORT INFORMATION
  Report Type: Spontaneous
  Country: US (occurrence: US)
  Receive Date: 20230130
  Receipt Date: 20230130
  Transmission Date: 20230417
  Serious: No
  Sender: FDA-Public Use
  Company Number: US-STRIDES ARCOLAB LIMITED-2022SP016616

PATIENT
  Age: 45 Year
  Sex: Female

DRUGS (5)
  1. EFAVIRENZ [Suspect]
     Active Substance: EFAVIRENZ
     Indication: Product used for unknown indication
     Dosage: UNK (ONE COURS) (1) (FROM 0 GESTATION PERIOD TO 12 GESTATION PERIOD)
     Route: 048
  2. LAMIVUDINE [Suspect]
     Active Substance: LAMIVUDINE
     Indication: Product used for unknown indication
     Dosage: UNK (ONE COURSE) (1) (FROM 0 GESTATION PERIOD TO 12 GESTATION PERIOD)
     Route: 048
  3. TENOFOVIR DISOPROXIL FUMARATE [Suspect]
     Active Substance: TENOFOVIR DISOPROXIL FUMARATE
     Indication: Product used for unknown indication
     Dosage: UNK (ONE COURSE) (1) (FROM 0 GESTATION PERIOD TO 12 GESTATION PERIOD)
     Route: 048
  4. EMTRICITABINE\TENOFOVIR DISOPROXIL [Suspect]
     Active Substance: EMTRICITABINE\TENOFOVIR DISOPROXIL
     Indication: Product used for unknown indication
     Dosage: UNK (ONE COURSE) (1) (FROM START WITH 12 WEEKS OF GESTATION TO END WITH UNKNOWN WEEKS OF GESTATION P
     Route: 048
  5. DOLUTEGRAVIR [Suspect]
     Active Substance: DOLUTEGRAVIR
     Indication: Product used for unknown indication
     Dosage: UNK 50 (FROM START WITH 12 WEEKS OF GESTATION TO END WITH UNKNOWN WEEKS OF GESTATION PERIOD)
     Route: 048

REACTIONS (1)
  - Maternal exposure during pregnancy [Unknown]
